FAERS Safety Report 5545686-3 (Version None)
Quarter: 2007Q4

REPORT INFORMATION
  Report Type: 
  Country: None (occurrence: None)
  Receive Date: 20071126
  Receipt Date: 20070313
  Transmission Date: 20080405
  Serious: Yes (Other)
  Sender: FDA-Public Use
  Company Number: 2007BH002873

PATIENT
  Age: 64 Year
  Sex: Female
  Weight: 97.9 kg

DRUGS (13)
  1. DIANEAL [Suspect]
     Indication: RENAL FAILURE CHRONIC
     Dosage: IP
     Route: 033
  2. DIANEAL [Suspect]
     Indication: RENAL FAILURE CHRONIC
     Dosage: IP
     Route: 033
  3. LOPRESSOR [Concomitant]
  4. ACTOS [Concomitant]
  5. DIGOXIN [Concomitant]
  6. LASIX [Concomitant]
  7. PLAVIX [Concomitant]
  8. PREVACID [Concomitant]
  9. NITROGLYCERIN [Concomitant]
  10. ATIVAN [Concomitant]
  11. NEURONTIN [Concomitant]
  12. QUININE [Concomitant]
  13. INSULIN [Concomitant]

REACTIONS (1)
  - PERITONITIS [None]
